FAERS Safety Report 10236305 (Version 1)
Quarter: 2014Q1

REPORT INFORMATION
  Report Type: Spontaneous
  Country: US (occurrence: None)
  Receive Date: 20140306
  Receipt Date: 20140306
  Transmission Date: 20141002
  Serious: Yes (Hospitalization)
  Sender: FDA-Public Use
  Company Number: 163-21880-13034686

PATIENT
  Age: 53 Year
  Sex: Male

DRUGS (1)
  1. REVLIMIDE(LENALIDOMIDE)(25 MILLIGRAM, CAPSULES) [Suspect]
     Indication: PLASMA CELL MYELOMA
     Dosage: 25 MG, 21 IN 21 D, PO
     Route: 048
     Dates: start: 201105, end: 20130315

REACTIONS (1)
  - Lung infection [None]
